FAERS Safety Report 13219440 (Version 1)
Quarter: 2017Q1

REPORT INFORMATION
  Report Type: Report from Study
  Country: JP (occurrence: JP)
  Receive Date: 20170210
  Receipt Date: 20170210
  Transmission Date: 20170428
  Serious: Yes (Death, Disabling, Other)
  Sender: FDA-Public Use
  Company Number: JP-BRISTOL-MYERS SQUIBB COMPANY-14893028

PATIENT
  Age: 63 Year
  Sex: Male
  Weight: 75 kg

DRUGS (6)
  1. MAGNESIUMOXIDE [Concomitant]
     Active Substance: MAGNESIUM OXIDE
     Indication: CONSTIPATION
     Dosage: 990 MG, QD
     Route: 048
     Dates: start: 20070907, end: 20090621
  2. PREDNISOLONE. [Concomitant]
     Active Substance: PREDNISOLONE
     Indication: DECREASED APPETITE
     Dosage: 5 MG, QD
     Route: 048
     Dates: start: 20090421, end: 20090621
  3. LANSOPRAZOLE. [Concomitant]
     Active Substance: LANSOPRAZOLE
     Indication: GASTRIC ULCER
     Dosage: 15 MG, QD
     Route: 048
     Dates: start: 20070812, end: 20090621
  4. OXYCODONE [Concomitant]
     Active Substance: OXYCODONE
     Indication: ANALGESIC THERAPY
     Dosage: 1 DF=10-20MG/DAY
     Route: 048
     Dates: start: 20090614, end: 20090621
  5. ENTECAVIR. [Suspect]
     Active Substance: ENTECAVIR
     Indication: CHRONIC HEPATITIS B
     Dosage: .5 MG, QD
     Route: 048
     Dates: start: 20070726, end: 20090621
  6. URSODEOXYCHOLIC ACID [Concomitant]
     Active Substance: URSODIOL
     Indication: CHRONIC HEPATITIS B
     Dosage: 300 MG, QD
     Route: 048
     Dates: start: 20070720, end: 20090621

REACTIONS (4)
  - Respiratory failure [Unknown]
  - Cerebral infarction [Recovered/Resolved with Sequelae]
  - White blood cell count decreased [Recovered/Resolved]
  - Liver carcinoma ruptured [Fatal]

NARRATIVE: CASE EVENT DATE: 20081209
